FAERS Safety Report 4395388-4 (Version None)
Quarter: 2004Q3

REPORT INFORMATION
  Report Type: 
  Country: None (occurrence: None)
  Receive Date: 20040707
  Receipt Date: 20040623
  Transmission Date: 20050211
  Serious: Yes (Life-Threatening, Hospitalization)
  Sender: FDA-Public Use
  Company Number: EM2004-0251

PATIENT
  Age: 57 Year
  Sex: Female
  Weight: 53 kg

DRUGS (5)
  1. PROLEUKIN [Suspect]
     Indication: RENAL CELL CARCINOMA STAGE UNSPECIFIED
     Dosage: SEE IMAGE SUBCUTAN.
     Route: 058
     Dates: start: 20040317, end: 20040409
  2. INTERFERON ALFA (INTERFERON ALFA) [Suspect]
     Indication: RENAL CELL CARCINOMA STAGE UNSPECIFIED
     Dosage: SEE IMAGE SUBCUTAN.
     Route: 058
     Dates: start: 20040315, end: 20040507
  3. FLUOROURACIL [Suspect]
     Indication: NEOPLASM MALIGNANT
     Dosage: 1150 MG
     Dates: start: 20040412, end: 20040503
  4. VASOCARDIN (METOPROLOL TARTRATE) [Concomitant]
  5. BROMAZEPAM (BROMAZEPAM) [Concomitant]

REACTIONS (7)
  - ABASIA [None]
  - DIARRHOEA [None]
  - DISEASE PROGRESSION [None]
  - FEBRILE NEUTROPENIA [None]
  - HAEMOGLOBIN INCREASED [None]
  - SEPSIS [None]
  - SUBILEUS [None]
